FAERS Safety Report 5265159-5 (Version None)
Quarter: 2007Q1

REPORT INFORMATION
  Report Type: 
  Country: None (occurrence: None)
  Receive Date: 20061213
  Receipt Date: 20050217
  Transmission Date: 20070707
  Serious: Yes (Disabling)
  Sender: FDA-Public Use
  Company Number: 2005UW00680

PATIENT
  Age: 80 Year
  Sex: Female
  Weight: 63.05 kg

DRUGS (4)
  1. NOLVADEX [Suspect]
     Indication: BREAST CANCER
     Dates: start: 19950101
  2. NOLVADEX [Suspect]
     Indication: BREAST CANCER
     Dosage: ATLAS TRIAL
     Dates: end: 20030901
  3. DIOVAN [Concomitant]
  4. FOSAMAX [Concomitant]

REACTIONS (1)
  - UTERINE CANCER [None]
